FAERS Safety Report 19845722 (Version 2)
Quarter: 2021Q3

REPORT INFORMATION
  Report Type: Spontaneous
  Country: JP (occurrence: JP)
  Receive Date: 20210916
  Receipt Date: 20210920
  Transmission Date: 20211014
  Serious: Yes (Death)
  Sender: FDA-Public Use
  Company Number: JP-SYNEX-T202104146

PATIENT

DRUGS (1)
  1. INOFLO [Suspect]
     Active Substance: NITRIC OXIDE
     Indication: PULMONARY HYPERTENSION
     Dosage: UNK (INHALATION)
     Route: 055

REACTIONS (1)
  - Death [Fatal]
